FAERS Safety Report 7111659-2 (Version None)
Quarter: 2010Q4

REPORT INFORMATION
  Report Type: 
  Country: None (occurrence: None)
  Receive Date: 20101118
  Receipt Date: 20101108
  Transmission Date: 20110411
  Serious: Yes (Other)
  Sender: FDA-Public Use
  Company Number: NL-GILEAD-2010-0033316

PATIENT
  Age: 52 Year
  Sex: Male

DRUGS (5)
  1. VIREAD [Suspect]
     Indication: HIV INFECTION
     Dates: start: 20070701
  2. EMTRIVA [Suspect]
     Indication: HIV INFECTION
     Dates: start: 20070701
  3. ATAZANAVIR [Concomitant]
     Indication: HIV INFECTION
     Dates: start: 20070701
  4. RITONAVIR [Concomitant]
     Indication: HIV INFECTION
     Dates: start: 20070701
  5. DIDANOSINE [Concomitant]
     Indication: HIV INFECTION
     Dates: start: 20070701

REACTIONS (4)
  - CD4 LYMPHOCYTES DECREASED [None]
  - DRUG INTERACTION [None]
  - MITOCHONDRIAL TOXICITY [None]
  - RENAL TUBULAR DISORDER [None]
